FAERS Safety Report 16258716 (Version 1)
Quarter: 2019Q2

REPORT INFORMATION
  Report Type: Spontaneous
  Country: JP (occurrence: JP)
  Receive Date: 20190430
  Receipt Date: 20190430
  Transmission Date: 20190711
  Serious: Yes (Hospitalization)
  Sender: FDA-Public Use
  Company Number: JP-ROCHE-2308136

PATIENT
  Age: 73 Year
  Sex: Male

DRUGS (3)
  1. XELIRI [IRINOTECAN COMPONENT] [Suspect]
     Active Substance: IRINOTECAN HYDROCHLORIDE
     Indication: COLON CANCER
     Dosage: DOSAGE IS UNCERTAIN. ?7 COURSES
     Route: 041
     Dates: start: 20170914
  2. AVASTIN [Suspect]
     Active Substance: BEVACIZUMAB
     Indication: COLON CANCER
     Dosage: 7 COURSES,
     Route: 041
     Dates: start: 20170914, end: 20180126
  3. XELODA [Suspect]
     Active Substance: CAPECITABINE
     Indication: COLON CANCER
     Dosage: 7 COURSES
     Route: 048
     Dates: start: 20170914, end: 20180113

REACTIONS (2)
  - Stomatitis [Recovered/Resolved]
  - Ascites [Unknown]
